FAERS Safety Report 25795673 (Version 1)
Quarter: 2025Q3

REPORT INFORMATION
  Report Type: Other
  Country: GB (occurrence: GB)
  Receive Date: 20250912
  Receipt Date: 20250912
  Transmission Date: 20251020
  Serious: Yes (Other)
  Sender: IPCA
  Company Number: None

PATIENT

DRUGS (3)
  1. HYDROXYCHLOROQUINE [Suspect]
     Active Substance: HYDROXYCHLOROQUINE
     Indication: Antiphospholipid syndrome
     Route: 065
     Dates: start: 20250210, end: 20250828
  2. CITALOPRAM [Concomitant]
     Active Substance: CITALOPRAM
     Indication: Major depression
     Route: 065
  3. CANDESARTAN [Concomitant]
     Active Substance: CANDESARTAN
     Indication: Migraine with aura
     Route: 065

REACTIONS (5)
  - Heavy menstrual bleeding [Recovering/Resolving]
  - Intermenstrual bleeding [Recovering/Resolving]
  - Heavy menstrual bleeding [Recovering/Resolving]
  - Joint swelling [Recovering/Resolving]
  - Contusion [Recovering/Resolving]
